FAERS Safety Report 8359828-8 (Version None)
Quarter: 2012Q2

REPORT INFORMATION
  Report Type: 
  Country: None (occurrence: None)
  Receive Date: 20120515
  Receipt Date: 20120504
  Transmission Date: 20120825
  Serious: Yes (Hospitalization)
  Sender: FDA-Public Use
  Company Number: US-JNJFOC-20120507163

PATIENT
  Sex: Female
  Weight: 86.18 kg

DRUGS (6)
  1. DURAGESIC-100 [Suspect]
     Indication: PAIN
     Route: 062
     Dates: start: 20120201
  2. LAMICTAL [Concomitant]
     Indication: DRUG THERAPY
     Route: 048
     Dates: start: 20090101
  3. OXYCODONE HCL [Concomitant]
     Indication: PAIN
     Dosage: EVERY 4-6 HOURS
     Route: 048
     Dates: start: 20060101
  4. FENTANYL-100 [Suspect]
     Indication: PAIN
     Route: 062
     Dates: end: 20120101
  5. KLONOPIN [Concomitant]
     Indication: SLEEP DISORDER
     Route: 048
     Dates: start: 20110101
  6. PROZAC [Concomitant]
     Indication: DEPRESSION
     Route: 048
     Dates: start: 20060101

REACTIONS (6)
  - NEOPLASM MALIGNANT [None]
  - PRODUCT QUALITY ISSUE [None]
  - PROCEDURAL PAIN [None]
  - PRODUCT ADHESION ISSUE [None]
  - DRUG ADMINISTERED AT INAPPROPRIATE SITE [None]
  - NEPHROLITHIASIS [None]
